FAERS Safety Report 12442960 (Version 3)
Quarter: 2016Q2

REPORT INFORMATION
  Report Type: Spontaneous
  Country: JP (occurrence: JP)
  Receive Date: 20160607
  Receipt Date: 20160622
  Transmission Date: 20160815
  Serious: Yes (Death)
  Sender: FDA-Public Use
  Company Number: JP-SA-2016SA105946

PATIENT
  Age: 76 Year
  Sex: Male

DRUGS (25)
  1. TS-1 [Suspect]
     Active Substance: GIMERACIL\OTERACIL\TEGAFUR
     Indication: GASTRIC CANCER
     Dosage: 100MG/DAY
     Route: 048
     Dates: start: 20151111, end: 20151125
  2. HERCEPTIN [Concomitant]
     Active Substance: TRASTUZUMAB
     Dosage: REDUCED TO 350 MG.
     Route: 065
  3. ELPLAT [Suspect]
     Active Substance: OXALIPLATIN
     Indication: GASTRIC CANCER
     Dosage: 210 MG/BODY
     Route: 041
     Dates: start: 20160331, end: 20160331
  4. TS-1 [Suspect]
     Active Substance: GIMERACIL\OTERACIL\TEGAFUR
     Indication: GASTRIC CANCER
     Dosage: 100MG/DAY
     Route: 048
     Dates: start: 20160114, end: 20160128
  5. TS-1 [Suspect]
     Active Substance: GIMERACIL\OTERACIL\TEGAFUR
     Indication: GASTRIC CANCER
     Route: 048
  6. HERCEPTIN [Concomitant]
     Active Substance: TRASTUZUMAB
     Route: 065
     Dates: start: 20151021, end: 20160421
  7. LEVOFLOXACIN. [Concomitant]
     Active Substance: LEVOFLOXACIN
     Route: 065
     Dates: start: 20160523, end: 20160525
  8. ELPLAT [Suspect]
     Active Substance: OXALIPLATIN
     Indication: GASTRIC CANCER
     Dosage: 210 MG/BODY
     Route: 041
     Dates: start: 20160225, end: 20160225
  9. LINEZOLID. [Concomitant]
     Active Substance: LINEZOLID
     Route: 051
     Dates: start: 20160526, end: 20160527
  10. ELPLAT [Suspect]
     Active Substance: OXALIPLATIN
     Indication: GASTRIC CANCER
     Dosage: 210 MG/BODY
     Route: 041
  11. TS-1 [Suspect]
     Active Substance: GIMERACIL\OTERACIL\TEGAFUR
     Indication: GASTRIC CANCER
     Dosage: 120MG /DAY
     Route: 048
     Dates: start: 20151021, end: 20151104
  12. TS-1 [Suspect]
     Active Substance: GIMERACIL\OTERACIL\TEGAFUR
     Indication: GASTRIC CANCER
     Dosage: 100MG/DAY
     Route: 048
     Dates: start: 20151210, end: 20151224
  13. TS-1 [Suspect]
     Active Substance: GIMERACIL\OTERACIL\TEGAFUR
     Indication: GASTRIC CANCER
     Dosage: 100MG/DAY
     Route: 048
     Dates: start: 20160421, end: 20160501
  14. TS-1 [Suspect]
     Active Substance: GIMERACIL\OTERACIL\TEGAFUR
     Indication: GASTRIC CANCER
     Route: 048
     Dates: start: 20160421, end: 20160421
  15. ELPLAT [Suspect]
     Active Substance: OXALIPLATIN
     Indication: GASTRIC CANCER
     Dosage: 210 MG/BODY
     Route: 041
     Dates: start: 20160114, end: 20160114
  16. TS-1 [Suspect]
     Active Substance: GIMERACIL\OTERACIL\TEGAFUR
     Indication: GASTRIC CANCER
     Dosage: 100MG/DAY
     Route: 048
     Dates: start: 20160204, end: 20160218
  17. ELPLAT [Suspect]
     Active Substance: OXALIPLATIN
     Indication: GASTRIC CANCER
     Dosage: 210 MG/BODY
     Route: 041
     Dates: start: 20151021, end: 20151021
  18. ELPLAT [Suspect]
     Active Substance: OXALIPLATIN
     Indication: GASTRIC CANCER
     Dosage: 210 MG/BODY
     Route: 041
     Dates: start: 20160421, end: 20160421
  19. TS-1 [Suspect]
     Active Substance: GIMERACIL\OTERACIL\TEGAFUR
     Indication: GASTRIC CANCER
     Dosage: 100MG/DAY
     Route: 048
     Dates: start: 20160225, end: 20160310
  20. TS-1 [Suspect]
     Active Substance: GIMERACIL\OTERACIL\TEGAFUR
     Indication: GASTRIC CANCER
     Dosage: 100MG/DAY
     Route: 048
     Dates: start: 20160331, end: 20160414
  21. ELPLAT [Suspect]
     Active Substance: OXALIPLATIN
     Indication: GASTRIC CANCER
     Dosage: 210 MG/BODY
     Route: 041
     Dates: start: 20160204, end: 20160204
  22. ELPLAT [Suspect]
     Active Substance: OXALIPLATIN
     Indication: GASTRIC CANCER
     Dosage: 210 MG/BODY
     Route: 041
     Dates: start: 20151111, end: 20151111
  23. ELPLAT [Suspect]
     Active Substance: OXALIPLATIN
     Indication: GASTRIC CANCER
     Dosage: 210 MG/BODY
     Route: 041
     Dates: start: 20151210, end: 20151210
  24. ZOSYN [Concomitant]
     Active Substance: PIPERACILLIN SODIUM\TAZOBACTAM SODIUM
     Route: 065
     Dates: start: 20160520, end: 20160525
  25. MEROPENEM. [Concomitant]
     Active Substance: MEROPENEM
     Route: 051
     Dates: start: 20160526, end: 20160527

REACTIONS (4)
  - Lung infection [Fatal]
  - Malaise [Unknown]
  - Platelet count decreased [Unknown]
  - Neutrophil count decreased [Unknown]

NARRATIVE: CASE EVENT DATE: 20160501
